FAERS Safety Report 4519738-0 (Version None)
Quarter: 2004Q4

REPORT INFORMATION
  Report Type: 
  Country: None (occurrence: None)
  Receive Date: 20041203
  Receipt Date: 20041203
  Transmission Date: 20050328
  Serious: Yes (Disabling)
  Sender: FDA-Public Use
  Company Number: None

PATIENT
  Age: 52 Year
  Sex: Female
  Weight: 68.0396 kg

DRUGS (1)
  1. ZICAM COLD REMEDY [Suspect]
     Dates: start: 20010315, end: 20010320

REACTIONS (2)
  - ANOSMIA [None]
  - DYSGEUSIA [None]
